FAERS Safety Report 7682705-2 (Version None)
Quarter: 2011Q3

REPORT INFORMATION
  Report Type: 
  Country: None (occurrence: None)
  Receive Date: 20110815
  Receipt Date: 20110808
  Transmission Date: 20111222
  Serious: Yes (Other)
  Sender: FDA-Public Use
  Company Number: US-JNJFOC-20110804487

PATIENT
  Sex: Male
  Weight: 78.02 kg

DRUGS (4)
  1. PRILOSEC [Concomitant]
     Indication: HIATUS HERNIA
     Route: 048
     Dates: start: 19910101
  2. PRILOSEC [Concomitant]
     Indication: GASTROOESOPHAGEAL REFLUX DISEASE
     Route: 048
     Dates: start: 19910101
  3. LEVAQUIN [Suspect]
     Indication: SINUSITIS
     Route: 048
     Dates: start: 20101001, end: 20101001
  4. LISINOPRIL [Concomitant]
     Indication: HYPERTENSION
     Route: 048
     Dates: start: 20060101

REACTIONS (2)
  - TENDON PAIN [None]
  - HYPOKINESIA [None]
